FAERS Safety Report 6533806-3 (Version None)
Quarter: 2010Q1

REPORT INFORMATION
  Report Type: 
  Country: None (occurrence: None)
  Receive Date: 20100111
  Receipt Date: 20090304
  Transmission Date: 20100710
  Serious: No
  Sender: FDA-Public Use
  Company Number: US-ABBOTT-09P-163-0560906-00

PATIENT
  Sex: Male

DRUGS (2)
  1. VICODIN [Suspect]
     Indication: CANCER PAIN
  2. OXYCONTIN [Suspect]
     Indication: CANCER PAIN

REACTIONS (1)
  - CONSTIPATION [None]
